FAERS Safety Report 9592971 (Version 1)
Quarter: 2013Q4

REPORT INFORMATION
  Report Type: Spontaneous
  Country: US (occurrence: None)
  Receive Date: 20131002
  Receipt Date: 20131002
  Transmission Date: 20140711
  Serious: Yes (Other)
  Sender: FDA-Public Use
  Company Number: 2013P1019624

PATIENT
  Sex: 0

DRUGS (1)
  1. RILUTEK [Suspect]

REACTIONS (1)
  - Surgery [None]
